FAERS Safety Report 7957014-4 (Version None)
Quarter: 2011Q4

REPORT INFORMATION
  Report Type: 
  Country: None (occurrence: None)
  Receive Date: 20111205
  Receipt Date: 20111205
  Transmission Date: 20120403
  Serious: Yes (Other)
  Sender: FDA-Public Use
  Company Number: None

PATIENT
  Sex: Female
  Weight: 83.5 kg

DRUGS (1)
  1. CARBOPLATIN [Suspect]
     Dosage: 660 MG
     Route: 042

REACTIONS (4)
  - DYSPNOEA [None]
  - VISUAL IMPAIRMENT [None]
  - ABDOMINAL PAIN [None]
  - ANXIETY [None]
